FAERS Safety Report 7258797-1 (Version None)
Quarter: 2011Q1

REPORT INFORMATION
  Report Type: 
  Country: None (occurrence: None)
  Receive Date: 20110129
  Receipt Date: 20100521
  Transmission Date: 20110831
  Serious: No
  Sender: FDA-Public Use
  Company Number: US-ABBOTT-10P-163-0647577-00

PATIENT
  Sex: Female

DRUGS (7)
  1. CELEBREX [Concomitant]
     Indication: ARTHRALGIA
  2. ACTONEL [Concomitant]
     Indication: PROPHYLAXIS
  3. HUMIRA [Suspect]
     Indication: RHEUMATOID ARTHRITIS
     Dates: start: 20070101
  4. FOLIC ACID [Concomitant]
     Indication: VITAMIN SUPPLEMENTATION
  5. PREDNISONE [Concomitant]
     Indication: RHEUMATOID ARTHRITIS
  6. METHOTREXATE [Concomitant]
     Indication: RHEUMATOID ARTHRITIS
  7. ACTONEL [Concomitant]
     Indication: BONE DISORDER

REACTIONS (2)
  - PSORIATIC ARTHROPATHY [None]
  - DRUG DOSE OMISSION [None]
